FAERS Safety Report 8286873-3 (Version None)
Quarter: 2012Q2

REPORT INFORMATION
  Report Type: 
  Country: None (occurrence: None)
  Receive Date: 20120416
  Receipt Date: 20120406
  Transmission Date: 20120825
  Serious: Yes (Other)
  Sender: FDA-Public Use
  Company Number: US-US-EMD SERONO, INC.-7120037

PATIENT
  Sex: Female

DRUGS (4)
  1. UNSPECIFIED BIPOLAR MEDICATION [Concomitant]
     Indication: BIPOLAR II DISORDER
  2. UNSPECIFIED ANXIETY MEDICATION [Concomitant]
     Indication: ANXIETY
  3. REBIF [Suspect]
     Indication: MULTIPLE SCLEROSIS
     Route: 058
     Dates: start: 20120206
  4. UNSPECIFIED MEDICATION [Concomitant]
     Indication: HEADACHE

REACTIONS (8)
  - DEPRESSION [None]
  - SUICIDAL BEHAVIOUR [None]
  - BIPOLAR DISORDER [None]
  - GLYCOSYLATED HAEMOGLOBIN INCREASED [None]
  - ANXIETY [None]
  - RASH [None]
  - EYE PAIN [None]
  - MIGRAINE [None]
